FAERS Safety Report 7541773 (Version 2)
Quarter: 2012Q4

REPORT INFORMATION
  Report Type: Spontaneous
  Country: US (occurrence: None)
  Receive Date: 20100804
  Receipt Date: 20120824
  Transmission Date: 20130627
  Serious: Yes (Other)
  Sender: FDA-Public Use
  Company Number: DSU-2010-03615

PATIENT
  Age: 72 Year
  Sex: Female
  Weight: 86.18 kg

DRUGS (2)
  1. AZOR [Suspect]
     Indication: HYPERTENSION
     Dosage: 10/20MG (QD), PER ORAL; 5/20MG (QD), PER ORAL
     Route: 048
     Dates: start: 201005
  2. AZOR [Suspect]
     Indication: HYPERTENSION
     Dosage: 10/20MG (QD), PER ORAL; 5/20MG (QD), PER ORAL
     Route: 048
     Dates: start: 201003, end: 201005

REACTIONS (5)
  - OEDEMA PERIPHERAL [None]
  - HYPERHIDROSIS [None]
  - CYSTITIS NONINFECTIVE [None]
  - NEPHROLITHIASIS [None]
  - CALCULUS URINARY [None]
